FAERS Safety Report 13691229 (Version 1)
Quarter: 2017Q2

REPORT INFORMATION
  Report Type: Spontaneous
  Country: US (occurrence: US)
  Receive Date: 20170626
  Receipt Date: 20170626
  Transmission Date: 20170830
  Serious: Yes (Hospitalization, Other)
  Sender: FDA-Public Use
  Company Number: US-ROCHE-703792

PATIENT
  Age: 62 Year
  Sex: Male
  Weight: 97.1 kg

DRUGS (6)
  1. PROCARDIA [Concomitant]
     Active Substance: NIFEDIPINE
     Route: 065
  2. CELLCEPT [Suspect]
     Active Substance: MYCOPHENOLATE MOFETIL\MYCOPHENOLATE MOFETIL HYDROCHLORIDE
     Indication: PROPHYLAXIS AGAINST TRANSPLANT REJECTION
     Route: 048
  3. TEKTURNA [Suspect]
     Active Substance: ALISKIREN HEMIFUMARATE
     Indication: HYPERTENSION
     Route: 065
  4. NEORAL [Concomitant]
     Active Substance: CYCLOSPORINE
     Route: 065
  5. PREDNISONE. [Concomitant]
     Active Substance: PREDNISONE
     Route: 065
  6. CELLCEPT [Suspect]
     Active Substance: MYCOPHENOLATE MOFETIL\MYCOPHENOLATE MOFETIL HYDROCHLORIDE
     Route: 048

REACTIONS (3)
  - Anaemia [Unknown]
  - Blood creatinine increased [Unknown]
  - Haematochezia [Unknown]

NARRATIVE: CASE EVENT DATE: 20100310
